FAERS Safety Report 10608131 (Version 2)
Quarter: 2015Q1

REPORT INFORMATION
  Report Type: Report from Study
  Country: FR (occurrence: FR)
  Receive Date: 20141125
  Receipt Date: 20150209
  Transmission Date: 20150720
  Serious: Yes (Death, Life-Threatening, Hospitalization, Other)
  Sender: FDA-Public Use
  Company Number: FR-BAYER-2014-169312

PATIENT
  Age: 62 Year
  Sex: Male

DRUGS (8)
  1. LOVENOX [Concomitant]
     Active Substance: ENOXAPARIN SODIUM
     Dosage: 0.4 ML, QD
     Route: 058
  2. TOPALGIC [SUPROFEN] [Concomitant]
     Dosage: 100 MG, UNK(1-0-1)
  3. REGORAFENIB [Suspect]
     Active Substance: REGORAFENIB
     Indication: COLORECTAL CANCER METASTATIC
     Dosage: 160 MG, UNK
     Dates: start: 20130703
  4. VITAMIN B1 AND B6 [Concomitant]
     Active Substance: PYRIDOXINE HYDROCHLORIDE\THIAMINE HYDROCHLORIDE
     Dosage: 1-0-1
  5. ALPRAZOLAM. [Concomitant]
     Active Substance: ALPRAZOLAM
     Dosage: 0.25 MG, UNK
  6. LYRICA [Concomitant]
     Active Substance: PREGABALIN
     Dosage: 100 MG, UNK(1-0-1)
  7. XATRAL SR [Concomitant]
     Active Substance: ALFUZOSIN
     Dosage: 10 MG, QD
  8. ACUPAN [Concomitant]
     Active Substance: NEFOPAM HYDROCHLORIDE
     Dosage: 20 MG, UNK(1-1-1)

REACTIONS (12)
  - Insomnia [Recovered/Resolved]
  - Death [Fatal]
  - General physical health deterioration [Recovered/Resolved]
  - Rectal haemorrhage [Recovered/Resolved]
  - Prerenal failure [Recovered/Resolved]
  - General physical health deterioration [Not Recovered/Not Resolved]
  - Hypothermia [Recovered/Resolved]
  - Infection [Not Recovered/Not Resolved]
  - Decreased appetite [Recovered/Resolved]
  - Dehydration [Recovered/Resolved]
  - Asthenia [Not Recovered/Not Resolved]
  - Palmar-plantar erythrodysaesthesia syndrome [Not Recovered/Not Resolved]

NARRATIVE: CASE EVENT DATE: 20130808
